FAERS Safety Report 5275513-3 (Version None)
Quarter: 2007Q1

REPORT INFORMATION
  Report Type: 
  Country: None (occurrence: None)
  Receive Date: 20070326
  Receipt Date: 20070319
  Transmission Date: 20070707
  Serious: Yes (Hospitalization, Other)
  Sender: FDA-Public Use
  Company Number: US-AVENTIS-200711919US

PATIENT
  Sex: Female

DRUGS (1)
  1. KETEK [Suspect]
     Indication: PNEUMONIA
     Dosage: DOSE: 2 TABS
     Route: 048
     Dates: start: 20070309, end: 20070313

REACTIONS (8)
  - ABDOMINAL PAIN [None]
  - FATIGUE [None]
  - HEPATIC FAILURE [None]
  - HEPATITIS [None]
  - NAUSEA [None]
  - RENAL FAILURE [None]
  - THROMBOSIS [None]
  - VOMITING [None]
